FAERS Safety Report 5064390-1 (Version None)
Quarter: 2006Q3

REPORT INFORMATION
  Report Type: 
  Country: None (occurrence: None)
  Receive Date: 20060726
  Receipt Date: 20060712
  Transmission Date: 20061208
  Serious: Yes (Hospitalization)
  Sender: FDA-Public Use
  Company Number: E2020-00260-SOL-US

PATIENT
  Age: 77 Year
  Sex: Female

DRUGS (4)
  1. ARICEPT [Suspect]
     Indication: DEMENTIA ALZHEIMER'S TYPE
     Dosage: 10 MG, 1 IN 1 D, ORAL
     Route: 048
     Dates: start: 20050224, end: 20050101
  2. ARICEPT [Suspect]
     Indication: DEMENTIA ALZHEIMER'S TYPE
     Dosage: 10 MG, 1 IN 1 D, ORAL
     Route: 048
     Dates: start: 20050516
  3. COUMADIN [Concomitant]
  4. PATCH FOR CHRONIC PAIN [Concomitant]

REACTIONS (3)
  - MIGRAINE [None]
  - SPEECH DISORDER [None]
  - VOMITING [None]
